FAERS Safety Report 19189513 (Version 1)
Quarter: 2021Q2

REPORT INFORMATION
  Report Type: Spontaneous
  Country: US (occurrence: US)
  Receive Date: 20210428
  Receipt Date: 20210428
  Transmission Date: 20210717
  Serious: No
  Sender: FDA-Public Use
  Company Number: None

PATIENT
  Sex: Female

DRUGS (1)
  1. PROLIA [Suspect]
     Active Substance: DENOSUMAB

REACTIONS (5)
  - Loose tooth [None]
  - Osteonecrosis [None]
  - Fracture [None]
  - Spinal compression fracture [None]
  - Tooth loss [None]

NARRATIVE: CASE EVENT DATE: 20200801
